FAERS Safety Report 17462240 (Version 1)
Quarter: 2020Q1

REPORT INFORMATION
  Report Type: Spontaneous
  Country: US (occurrence: US)
  Receive Date: 20200213
  Receipt Date: 20200213
  Transmission Date: 20200409
  Serious: Yes (Hospitalization)
  Sender: FDA-Public Use
  Company Number: None

PATIENT
  Sex: Female
  Weight: 25.9 kg

DRUGS (3)
  1. CYCLOPHOSPHAMIDE (26271) [Suspect]
     Active Substance: CYCLOPHOSPHAMIDE
  2. VINCRISTINE SULFATE. [Concomitant]
     Active Substance: VINCRISTINE SULFATE
  3. DACTINOMYCIN [Concomitant]
     Active Substance: DACTINOMYCIN

REACTIONS (4)
  - Ataxia [None]
  - Osteosarcoma [None]
  - Tinnitus [None]
  - Deafness [None]
